FAERS Safety Report 6240590-X (Version None)
Quarter: 2009Q2

REPORT INFORMATION
  Report Type: 
  Country: None (occurrence: None)
  Receive Date: 20090623
  Receipt Date: 20081020
  Transmission Date: 20091009
  Serious: No
  Sender: FDA-Public Use
  Company Number: US-ASTRAZENECA-2008UW23171

PATIENT
  Sex: Female

DRUGS (10)
  1. PULMICORT RESPULES [Suspect]
     Indication: ASTHMA
     Route: 055
  2. COUMADIN [Concomitant]
  3. ARIMIDEX [Concomitant]
  4. PROPRANOLOL [Concomitant]
  5. SYNTHROID [Concomitant]
  6. NEURONTIN [Concomitant]
  7. SIMVASTATIN [Concomitant]
  8. EFFEXOR [Concomitant]
  9. ROBITUSSIN DM [Concomitant]
  10. SUDAFED 12 HOUR [Concomitant]

REACTIONS (2)
  - ORAL CANDIDIASIS [None]
  - RASH [None]
